FAERS Safety Report 7163432-7 (Version None)
Quarter: 2010Q4

REPORT INFORMATION
  Report Type: 
  Country: None (occurrence: None)
  Receive Date: 20101215
  Receipt Date: 20100416
  Transmission Date: 20110411
  Serious: Yes (Other)
  Sender: FDA-Public Use
  Company Number: DE-PFIZER INC-2010048147

PATIENT
  Sex: Female

DRUGS (1)
  1. LYRICA [Suspect]
     Indication: SLEEP DISORDER
     Dosage: 25 MG, UNK
     Route: 048

REACTIONS (10)
  - AGITATION [None]
  - APATHY [None]
  - CONFUSIONAL STATE [None]
  - DEPRESSED MOOD [None]
  - DEPRESSION [None]
  - DISORIENTATION [None]
  - EUPHORIC MOOD [None]
  - IRRITABILITY [None]
  - MOOD SWINGS [None]
  - RESTLESSNESS [None]
